FAERS Safety Report 24189130 (Version 1)
Quarter: 2024Q3

REPORT INFORMATION
  Report Type: Spontaneous
  Country: GB (occurrence: GB)
  Receive Date: 20240808
  Receipt Date: 20240808
  Transmission Date: 20241017
  Serious: Yes (Disabling, Other)
  Sender: LUNDBECK
  Company Number: None

PATIENT

DRUGS (5)
  1. VYEPTI [Suspect]
     Active Substance: EPTINEZUMAB\EPTINEZUMAB-JJMR
     Indication: Migraine
     Route: 041
     Dates: start: 20240606
  2. NAPROXEN [Concomitant]
     Active Substance: NAPROXEN
     Indication: Migraine
  3. COCODAMOL [Concomitant]
     Active Substance: ACETAMINOPHEN\CODEINE PHOSPHATE
     Indication: Migraine
  4. OMEPRAZOLE [Concomitant]
     Active Substance: OMEPRAZOLE
     Indication: Gastritis
  5. ESTRADIOL\NORETHINDRONE ACETATE [Concomitant]
     Active Substance: ESTRADIOL\NORETHINDRONE ACETATE
     Indication: Hormone replacement therapy

REACTIONS (1)
  - Arthritis [Not Recovered/Not Resolved]

NARRATIVE: CASE EVENT DATE: 20240716
